FAERS Safety Report 16003838 (Version 2)
Quarter: 2019Q1

REPORT INFORMATION
  Report Type: Spontaneous
  Country: US (occurrence: US)
  Receive Date: 20190226
  Receipt Date: 20190305
  Transmission Date: 20190418
  Serious: Yes (Other)
  Sender: FDA-Public Use
  Company Number: US-AUROBINDO-AUR-APL-2019-009441

PATIENT

DRUGS (20)
  1. COZAAR [Concomitant]
     Active Substance: LOSARTAN POTASSIUM
     Indication: PRODUCT USED FOR UNKNOWN INDICATION
     Dosage: 50 MILLIGRAM, DAILY
     Route: 065
  2. TRIAMTERENE AND HYDROCHLOROTHIAZIDE [Concomitant]
     Active Substance: HYDROCHLOROTHIAZIDE\TRIAMTERENE
  3. ACIPHEX [Concomitant]
     Active Substance: RABEPRAZOLE SODIUM
  4. CALCIUM [Concomitant]
     Active Substance: CALCIUM
  5. VITAMIN D [Concomitant]
     Active Substance: CHOLECALCIFEROL
  6. MODAFINIL TABLETS USP 100MG [Suspect]
     Active Substance: MODAFINIL
     Indication: SLEEP APNOEA SYNDROME
     Dosage: 100 MILLIGRAM, ONCE A DAY, IN THE MORNING
     Route: 048
     Dates: start: 201812
  7. PRAVACHOL [Concomitant]
     Active Substance: PRAVASTATIN SODIUM
  8. ENABLEX [Concomitant]
     Active Substance: DARIFENACIN HYDROBROMIDE
  9. FOLIC ACID. [Concomitant]
     Active Substance: FOLIC ACID
  10. SAM-E [Concomitant]
     Active Substance: ADEMETIONINE
  11. BIOTIN [Concomitant]
     Active Substance: BIOTIN
  12. METFORMIN [Concomitant]
     Active Substance: METFORMIN HYDROCHLORIDE
     Route: 065
  13. LORATADINE. [Concomitant]
     Active Substance: LORATADINE
  14. FISH OIL [Concomitant]
     Active Substance: FISH OIL
  15. MODAFINIL TABLETS USP 100MG [Suspect]
     Active Substance: MODAFINIL
     Dosage: 200 MILLIGRAM, DAILY
     Route: 065
     Dates: start: 2017
  16. SYNTHROID [Concomitant]
     Active Substance: LEVOTHYROXINE SODIUM
     Dosage: 150 MICROGRAM
  17. FLONASE [Concomitant]
     Active Substance: FLUTICASONE PROPIONATE
  18. ASPIRIN. [Concomitant]
     Active Substance: ASPIRIN
     Dosage: 81 MILLIGRAM
  19. GLUCOSAMINE [Concomitant]
     Active Substance: GLUCOSAMINE
  20. VITAMIN B12 [Suspect]
     Active Substance: CYANOCOBALAMIN

REACTIONS (5)
  - Blindness [Not Recovered/Not Resolved]
  - Cataract operation [Not Recovered/Not Resolved]
  - Abdominal discomfort [Recovered/Resolved]
  - Drug ineffective [Not Recovered/Not Resolved]
  - Wrong technique in product usage process [Unknown]
